FAERS Safety Report 23436183 (Version 1)
Quarter: 2024Q1

REPORT INFORMATION
  Report Type: Spontaneous
  Country: DE (occurrence: DE)
  Receive Date: 20240124
  Receipt Date: 20240124
  Transmission Date: 20240410
  Serious: Yes (Hospitalization)
  Sender: FDA-Public Use
  Company Number: DE-ORPHANEU-2024000317

PATIENT

DRUGS (1)
  1. CYSTADROPS [Suspect]
     Active Substance: CYSTEAMINE HYDROCHLORIDE
     Indication: Cystinosis
     Dosage: 2 GTT DROPS, TID (1 DROP(S) / EYE 3 TIMES / DAY)
     Route: 047
     Dates: start: 20180309

REACTIONS (4)
  - Papilloedema [Unknown]
  - Intracranial pressure increased [Unknown]
  - Dry eye [Not Recovered/Not Resolved]
  - Vision blurred [Recovered/Resolved]

NARRATIVE: CASE EVENT DATE: 20200207
